FAERS Safety Report 5268511-7 (Version None)
Quarter: 2007Q1

REPORT INFORMATION
  Report Type: 
  Country: None (occurrence: None)
  Receive Date: 20070319
  Receipt Date: 20070309
  Transmission Date: 20070707
  Serious: Yes (Other)
  Sender: FDA-Public Use
  Company Number: 2006UW28248

PATIENT
  Age: 17 Year
  Sex: Male
  Weight: 78.2 kg

DRUGS (7)
  1. SEROQUEL [Suspect]
     Indication: BIPOLAR DISORDER
     Dosage: 100 MG, 25 MG
     Route: 048
     Dates: start: 20040827, end: 20041210
  2. SEROQUEL [Suspect]
     Dosage: 100 MG, 25 MG
     Route: 048
     Dates: start: 20050213, end: 20050407
  3. SEROQUEL [Suspect]
     Route: 048
     Dates: start: 20050516
  4. ZYPREXA [Concomitant]
     Dates: start: 20030101
  5. HALDOL [Concomitant]
  6. TRILEPTAL [Concomitant]
     Dates: start: 20050101
  7. GEODON [Concomitant]
     Dates: start: 20060101

REACTIONS (5)
  - CONFUSIONAL STATE [None]
  - HYPOGLYCAEMIA [None]
  - METABOLIC ACIDOSIS [None]
  - ROAD TRAFFIC ACCIDENT [None]
  - SUTURE INSERTION [None]
